FAERS Safety Report 9123154 (Version 1)
Quarter: 2013Q1

REPORT INFORMATION
  Report Type: Spontaneous
  Country: FR (occurrence: FR)
  Receive Date: 20130115
  Receipt Date: 20130115
  Transmission Date: 20140127
  Serious: Yes (Other)
  Sender: FDA-Public Use
  Company Number: FR-009507513-1210FRA011409

PATIENT
  Age: 70 Year
  Sex: Female
  Weight: 119 kg

DRUGS (4)
  1. XELEVIA [Suspect]
     Indication: DIABETES MELLITUS
     Dosage: 100 MG, QD
     Route: 048
     Dates: start: 20120828, end: 20120831
  2. CRESTOR [Concomitant]
     Indication: HYPERCHOLESTEROLAEMIA
     Dosage: 5 MG, QD
     Route: 048
     Dates: start: 20120828
  3. AMAREL [Concomitant]
     Indication: DIABETES MELLITUS
     Dosage: 3 MG, QD
     Dates: start: 20120828
  4. AMAREL [Concomitant]
     Dosage: 6 MG, QD
     Route: 048
     Dates: start: 2007, end: 2007

REACTIONS (3)
  - Dermatitis bullous [Recovered/Resolved with Sequelae]
  - Erythema [Recovered/Resolved with Sequelae]
  - Pruritus [Recovered/Resolved with Sequelae]
